FAERS Safety Report 9720032 (Version 2)
Quarter: 2013Q4

REPORT INFORMATION
  Report Type: Spontaneous
  Country: DE (occurrence: DE)
  Receive Date: 20131128
  Receipt Date: 20131227
  Transmission Date: 20140711
  Serious: Yes (Hospitalization)
  Sender: FDA-Public Use
  Company Number: DE-BRISTOL-MYERS SQUIBB COMPANY-19834522

PATIENT
  Age: 88 Year
  Sex: Male

DRUGS (3)
  1. ELIQUIS [Suspect]
     Indication: ATRIAL FIBRILLATION
     Dosage: 2.5 MG TAB,1DF: 2TABS
     Route: 048
     Dates: start: 201301, end: 20131011
  2. PARACETAMOL [Suspect]
  3. COTRIM FORTE [Suspect]
     Dosage: 1 DF = 1

REACTIONS (5)
  - Influenza [Unknown]
  - Liver disorder [Unknown]
  - Lipase increased [Recovered/Resolved]
  - Abdominal pain [Unknown]
  - Bronchitis [Unknown]
